FAERS Safety Report 8890842 (Version 1)
Quarter: 2012Q4

REPORT INFORMATION
  Report Type: 
  Country: IL (occurrence: IL)
  Receive Date: 20121107
  Receipt Date: 20121107
  Transmission Date: 20130627
  Serious: Yes (Other)
  Sender: FDA-Public Use
  Company Number: IL-CELGENEUS-082-21880-12103518

PATIENT
  Age: 68 Year
  Sex: Female

DRUGS (1)
  1. REVLIMID [Suspect]
     Indication: MDS
     Dosage: 5 Milligram
     Route: 048
     Dates: start: 201201

REACTIONS (3)
  - Diabetes mellitus [Unknown]
  - Hypothyroidism [Unknown]
  - Muscle spasms [Unknown]
